FAERS Safety Report 9442462 (Version 1)
Quarter: 2013Q3

REPORT INFORMATION
  Report Type: Spontaneous
  Country: US (occurrence: US)
  Receive Date: 20130806
  Receipt Date: 20130806
  Transmission Date: 20140515
  Serious: Yes (Other)
  Sender: FDA-Public Use
  Company Number: US-BAYER-2013-093166

PATIENT
  Sex: Male

DRUGS (1)
  1. DOMEBORO POWDER PACKETS [Suspect]
     Indication: PAIN OF SKIN
     Route: 061

REACTIONS (2)
  - Choking [None]
  - Off label use [None]
